FAERS Safety Report 4309211-7 (Version None)
Quarter: 2004Q1

REPORT INFORMATION
  Report Type: 
  Country: None (occurrence: None)
  Receive Date: 20040227
  Receipt Date: 20040217
  Transmission Date: 20041129
  Serious: Yes (Hospitalization)
  Sender: FDA-Public Use
  Company Number: 04P-013-0250134-00

PATIENT
  Age: 46 Year
  Sex: Male
  Weight: 85 kg

DRUGS (14)
  1. KALETRA [Suspect]
     Indication: HIV INFECTION
     Dosage: 3 CAPSULE, 2 IN 1 D, PER ORAL
     Route: 048
     Dates: start: 20031020
  2. EPOETIN ALFA [Concomitant]
  3. FILGRASTIM [Concomitant]
  4. DIDANOSINE [Concomitant]
  5. LAMIVUDINE [Concomitant]
  6. FLUOXETINE [Concomitant]
  7. AMITRIPTYLINE HYDROCHLORIDE [Concomitant]
  8. FLUCONAZOLE [Concomitant]
  9. BACTRIM [Concomitant]
  10. LORMETAZEPAM [Concomitant]
  11. LORAZEPAM [Concomitant]
  12. OMEPRAZOLE [Concomitant]
  13. TRAZODONE HCL [Concomitant]
  14. FOLIC ACID [Concomitant]

REACTIONS (7)
  - ANAEMIA [None]
  - ECZEMA [None]
  - FEBRILE NEUTROPENIA [None]
  - MUCOSAL HAEMORRHAGE [None]
  - NEUROPATHY [None]
  - RHINORRHOEA [None]
  - TOXIC SKIN ERUPTION [None]
